FAERS Safety Report 9439079 (Version 3)
Quarter: 2013Q3

REPORT INFORMATION
  Report Type: Spontaneous
  Country: JP (occurrence: JP)
  Receive Date: 20130802
  Receipt Date: 20130827
  Transmission Date: 20140515
  Serious: Yes (Other)
  Sender: FDA-Public Use
  Company Number: JP-B.I. PHARMACEUTICALS,INC./RIDGEFIELD-2013-BI-23438YA

PATIENT
  Age: 81 Year
  Sex: Male

DRUGS (21)
  1. TAMSULOSINA [Suspect]
     Route: 048
  2. SYMBICORT [Suspect]
     Route: 055
  3. MEPTIN AIR (PROCATEROL HYDROCHLORIDE) [Concomitant]
     Route: 055
  4. SP (DEQUALINIUM CHLORIDE) [Concomitant]
     Dosage: FORMULATION: LOZENGE
  5. THEODUR (THEOPHYLLINE) [Concomitant]
  6. FLORID (MICONAZOLE) [Concomitant]
  7. TECHNIS (IFENPRODIL TARTRATE) [Concomitant]
  8. ALDACTONE A (SPIRONOLACTONE) [Concomitant]
  9. ECARD (CANDESARTAN CILEXETIL, HYDROCHLOROTHIAZIDE) [Concomitant]
  10. WARFARIN (WARFARIN) [Concomitant]
  11. PARULEON (TRIAZOLAM) [Concomitant]
  12. ETIZOLAM (ETIZOLAM) [Concomitant]
  13. URSO (URSODEOXYCHOLIC ACID) [Concomitant]
  14. ALOSENN (ACHILLEA MILLEFOLIUM, RUBIA TINCTORUM ROOT TINCTURE, SENNA) [Concomitant]
     Dosage: FORMULATION :GRANULE
  15. DAIKENCHUUTOU (PANAX GINSENG, ZANTHOXYLUM PIPERITUM, ZINGIBER OFFICINA [Concomitant]
     Dosage: FORMULATION:GRANULE
  16. MAGNESIUM OXIDE (MAGNESIUM OXIDE) [Concomitant]
     Route: 048
  17. MIYA BM (CLOSTRIDIUM BUTYRICUM) [Concomitant]
     Dosage: FORMULATION: FINE GRANULE
  18. OMEPRAL (OMEPRAZOLE) [Concomitant]
  19. GASLON N (IRSOGLADINE MALEATE) [Concomitant]
  20. MOHRUS (KETOPROFEN) [Concomitant]
     Dosage: FORMULATION :TAPE
  21. CIBENOL (CIBENZOLINE SUCCINATE) TABLET [Concomitant]
     Route: 048

REACTIONS (1)
  - Oesophageal candidiasis [Unknown]
